FAERS Safety Report 11499406 (Version 2)
Quarter: 2015Q4

REPORT INFORMATION
  Report Type: Spontaneous
  Country: HR (occurrence: HR)
  Receive Date: 20150914
  Receipt Date: 20151012
  Transmission Date: 20160304
  Serious: Yes (Hospitalization, Other)
  Sender: FDA-Public Use
  Company Number: HR-ABBVIE-15K-216-1460331-00

PATIENT
  Age: 31 Year
  Sex: Female
  Weight: 57 kg

DRUGS (3)
  1. HUMIRA [Suspect]
     Active Substance: ADALIMUMAB
     Indication: CROHN^S DISEASE
     Dosage: DISCONTINUED FOR ONE MONTH
     Route: 065
     Dates: start: 201002
  2. HUMIRA [Suspect]
     Active Substance: ADALIMUMAB
     Dosage: HUMIRA INTESIFIED
     Route: 065
     Dates: start: 201207, end: 201301
  3. HUMIRA [Suspect]
     Active Substance: ADALIMUMAB
     Route: 065

REACTIONS (25)
  - Rectal ulcer [Unknown]
  - Hidradenitis [Unknown]
  - Fibrosis [Unknown]
  - Presyncope [Unknown]
  - Faeces soft [Unknown]
  - Nodule [Unknown]
  - Erythema [Unknown]
  - Gastrointestinal mucosa hyperaemia [Unknown]
  - Psoriasis [Not Recovered/Not Resolved]
  - Wound secretion [Unknown]
  - Furuncle [Unknown]
  - Colitis [Unknown]
  - Rash pustular [Unknown]
  - Psoriasis [Recovered/Resolved]
  - Vulval disorder [Unknown]
  - Hypoaesthesia [Unknown]
  - Vulvar erosion [Unknown]
  - Abdominal pain [Unknown]
  - Secretion discharge [Unknown]
  - Pyoderma gangrenosum [Unknown]
  - Anal stenosis [Unknown]
  - Body temperature increased [Unknown]
  - Large intestinal obstruction [Unknown]
  - Orthostatic hypotension [Unknown]
  - Oedema mucosal [Unknown]

NARRATIVE: CASE EVENT DATE: 201005
